FAERS Safety Report 9630875 (Version 1)
Quarter: 2013Q4

REPORT INFORMATION
  Report Type: Spontaneous
  Country: US (occurrence: None)
  Receive Date: 20131015
  Receipt Date: 20131015
  Transmission Date: 20140711
  Serious: Yes (Other)
  Sender: FDA-Public Use
  Company Number: IPC201310-000392

PATIENT
  Age: 79 Year
  Sex: Female

DRUGS (17)
  1. FUROSEMIDE [Suspect]
     Dosage: ONCE A DAY
  2. METOPROLOL TARTRATE (METOPROLOL TARTRATE) (METOPROLOL TARTRATE) [Suspect]
     Dosage: ONCE A DAY
  3. ALLOPURINOL (ALLOPURINOL) (ALLOPURINOL) [Suspect]
  4. PROTONIX (PANTOPRAZOLE MAGNESIUM) (PANTAPRAZOLE MAGNESIUM) [Suspect]
     Dosage: ONCE A DAY
     Route: 048
  5. ATORVASTATIN CALCIUM (ATORVASTATIN CALCIUM) (ATORVASTATIN CALCIUM) [Suspect]
     Dosage: ONCE A DAY
  6. LYRICA (PREGABALIN) (PREGABALIN) [Suspect]
     Dosage: (ONE IN MORNING AND TWO IN AFTERNOON)
     Route: 048
  7. SULFASALAZINE (SULFASALAZINE) (SULFASALAZINE) [Suspect]
  8. POTASSIUM CHLORIDE (POTASSIUM CHLORIDE) (POTASSIUM CHLORIDE) [Suspect]
  9. PANTOPRAZOLE (PANTOPRAZOLE) (PANTOPRAZOLE) [Suspect]
     Dosage: ONCE A DAY
  10. PREDNISONE (PREDNISONE) (PREDNISONE) [Suspect]
     Dosage: ONCE A DAY
  11. SPIRIVA (TIOTROPIUM BROMIDE) (TIOTROPIUM BROMIDE) [Suspect]
     Dosage: ONCE A DAY
  12. PRADAXA (DABIGATRAN ATEXILATE MESILATE) (DABIGATRAN ETEXILATE MESILATE) [Suspect]
  13. ENALAPRIL MALEATE (ENALAPRIL MALEATE) (ENALAPRIL MALEATE) [Suspect]
  14. DIGOXIN (DIGOXIN) (DIGOXIN) [Suspect]
     Dosage: ONCE A DAY
  15. ADVAIR (FLUTICASONE PROPIONATE, SALMETEROL XINAFOATE) (FLUTICASONE PROPIONATE, SALMETEROL XINAFOATE) [Suspect]
  16. LEVEMIR (INSULIN DETEMIR) (INSULIN DETEMIR) [Suspect]
  17. NOVOLOG (INSULIN ASPART) (INSULIN ASPART) [Suspect]

REACTIONS (1)
  - Lung neoplasm malignant [None]
